FAERS Safety Report 16938140 (Version 1)
Quarter: 2019Q4

REPORT INFORMATION
  Report Type: Report from Study
  Country: US (occurrence: US)
  Receive Date: 20191018
  Receipt Date: 20191018
  Transmission Date: 20200122
  Serious: Yes (Hospitalization)
  Sender: FDA-Public Use
  Company Number: NVSC2019US008754

PATIENT
  Age: 73 Year
  Sex: Male
  Weight: 77 kg

DRUGS (7)
  1. TELMISARTAN. [Concomitant]
     Active Substance: TELMISARTAN
     Indication: HYPERTENSION
     Dosage: UNK
     Route: 065
     Dates: start: 20180402
  2. SANDOSTATIN LAR DEPOT [Suspect]
     Active Substance: OCTREOTIDE ACETATE
     Indication: NEUROENDOCRINE CARCINOMA
     Dosage: 30 MG, QMO (28 DAYS)
     Route: 065
     Dates: start: 20190221
  3. ATORVASTATIN [Concomitant]
     Active Substance: ATORVASTATIN
     Indication: PRODUCT USED FOR UNKNOWN INDICATION
     Dosage: UNK
     Route: 065
     Dates: start: 20180402
  4. AXITINIB [Suspect]
     Active Substance: AXITINIB
     Indication: NEUROENDOCRINE CARCINOMA
     Dosage: 5 MG, BID
     Route: 065
     Dates: start: 20190221, end: 20190616
  5. METFORMIN [Concomitant]
     Active Substance: METFORMIN HYDROCHLORIDE
     Indication: DIABETES MELLITUS
     Dosage: UNK
     Route: 065
     Dates: start: 20180402
  6. HYDROCHLOROTHIAZIDE. [Concomitant]
     Active Substance: HYDROCHLOROTHIAZIDE
     Indication: RENAL FAILURE
     Dosage: UNK
     Route: 065
     Dates: start: 20190322
  7. AXITINIB [Suspect]
     Active Substance: AXITINIB
     Dosage: 3 MG, BID
     Route: 065
     Dates: start: 20190617, end: 20190917

REACTIONS (2)
  - Cholecystitis acute [Recovered/Resolved]
  - Abdominal pain [Recovered/Resolved]

NARRATIVE: CASE EVENT DATE: 20190917
